FAERS Safety Report 25823830 (Version 1)
Quarter: 2025Q3

REPORT INFORMATION
  Report Type: Spontaneous
  Country: TR (occurrence: TR)
  Receive Date: 20250919
  Receipt Date: 20250919
  Transmission Date: 20251020
  Serious: Yes (Other)
  Sender: JOHNSON AND JOHNSON
  Company Number: TR-JNJFOC-20250912194

PATIENT
  Sex: Male

DRUGS (2)
  1. BALVERSA [Suspect]
     Active Substance: ERDAFITINIB
     Indication: Product used for unknown indication
     Route: 048
  2. BALVERSA [Suspect]
     Active Substance: ERDAFITINIB
     Route: 048

REACTIONS (6)
  - Erectile dysfunction [Unknown]
  - Eye oedema [Unknown]
  - Erythema [Unknown]
  - Hypoaesthesia [Unknown]
  - Nail disorder [Unknown]
  - Eye disorder [Unknown]
